FAERS Safety Report 17198583 (Version 1)
Quarter: 2019Q4

REPORT INFORMATION
  Report Type: Spontaneous
  Country: US (occurrence: US)
  Receive Date: 20191203
  Receipt Date: 20191203
  Transmission Date: 20200122
  Serious: Yes (Death)
  Sender: FDA-Public Use
  Company Number: None

PATIENT
  Age: 44 Year
  Sex: Male
  Weight: 71.21 kg

DRUGS (2)
  1. CLOZAPINE. [Suspect]
     Active Substance: CLOZAPINE
     Indication: BIPOLAR DISORDER
     Dates: start: 20191114, end: 20191125
  2. CLOZAPINE. [Suspect]
     Active Substance: CLOZAPINE
     Indication: SCHIZOAFFECTIVE DISORDER
     Dates: start: 20191114, end: 20191125

REACTIONS (12)
  - Contusion [None]
  - Ileus [None]
  - Vomiting [None]
  - Gait disturbance [None]
  - Sepsis [None]
  - Respiratory failure [None]
  - Quality of life decreased [None]
  - Nausea [None]
  - Pneumonia [None]
  - Agitation [None]
  - Pyrexia [None]
  - Lethargy [None]

NARRATIVE: CASE EVENT DATE: 20191125
